FAERS Safety Report 4350848-7 (Version None)
Quarter: 2004Q2

REPORT INFORMATION
  Report Type: 
  Country: None (occurrence: None)
  Receive Date: 20040427
  Receipt Date: 20040413
  Transmission Date: 20050107
  Serious: No
  Sender: FDA-Public Use
  Company Number: A01200401783

PATIENT
  Age: 22 Year
  Sex: Female

DRUGS (1)
  1. PLAVIX [Suspect]
     Indication: ANTIPHOSPHOLIPID SYNDROME
     Dosage: 75 MG QD
     Route: 048
     Dates: start: 20031107, end: 20031207

REACTIONS (4)
  - PRURITUS [None]
  - RASH GENERALISED [None]
  - RASH MACULO-PAPULAR [None]
  - TOXIC SKIN ERUPTION [None]
